FAERS Safety Report 5086525-7 (Version None)
Quarter: 2006Q3

REPORT INFORMATION
  Report Type: 
  Country: None (occurrence: None)
  Receive Date: 20060821
  Receipt Date: 20060821
  Transmission Date: 20061208
  Serious: Yes (Hospitalization, Other)
  Sender: FDA-Public Use
  Company Number: None

PATIENT
  Age: 46 Year
  Sex: Female
  Weight: 70.3075 kg

DRUGS (1)
  1. LEVAQUIN [Suspect]
     Indication: SINUSITIS
     Dosage: 1 TABLET     1 DAILY FOR 7 DAYS   PO
     Route: 048
     Dates: start: 20060424, end: 20060430

REACTIONS (11)
  - ANXIETY [None]
  - ARTHRALGIA [None]
  - BLOOD GLUCOSE FLUCTUATION [None]
  - DIZZINESS [None]
  - HEART RATE INCREASED [None]
  - MALAISE [None]
  - NIGHTMARE [None]
  - TENDON DISORDER [None]
  - TREMOR [None]
  - VISION BLURRED [None]
  - VITREOUS FLOATERS [None]
